FAERS Safety Report 6792758-1 (Version None)
Quarter: 2010Q2

REPORT INFORMATION
  Report Type: 
  Country: None (occurrence: None)
  Receive Date: 20100624
  Receipt Date: 20080930
  Transmission Date: 20101027
  Serious: No
  Sender: FDA-Public Use
  Company Number: US-PFIZER INC-2008082307

PATIENT
  Age: 64 Year
  Sex: Female

DRUGS (1)
  1. TRIAZOLAM [Suspect]

REACTIONS (3)
  - AGEUSIA [None]
  - ANXIETY [None]
  - HYPOAESTHESIA ORAL [None]
